FAERS Safety Report 15524368 (Version 3)
Quarter: 2019Q1

REPORT INFORMATION
  Report Type: Spontaneous
  Country: JP (occurrence: JP)
  Receive Date: 20181018
  Receipt Date: 20190130
  Transmission Date: 20190417
  Serious: Yes (Other)
  Sender: FDA-Public Use
  Company Number: JP-NAPPMUNDI-GBR-2018-0060526

PATIENT
  Age: 48 Year
  Sex: Female

DRUGS (5)
  1. LANSOPRAZOLE. [Concomitant]
     Active Substance: LANSOPRAZOLE
     Indication: GASTRITIS
     Dosage: 30 MG, DAILY
     Route: 048
     Dates: start: 20180811
  2. CALONAL [Concomitant]
     Active Substance: ACETAMINOPHEN
     Indication: APPENDIX CANCER
     Dosage: 500 MG, DAILY
     Route: 048
     Dates: start: 20180809
  3. OXYCONTIN [Suspect]
     Active Substance: OXYCODONE HYDROCHLORIDE
     Indication: APPENDIX CANCER
     Dosage: 10 MG, DAILY
     Route: 048
     Dates: start: 20180911, end: 20180913
  4. OXYCONTIN [Suspect]
     Active Substance: OXYCODONE HYDROCHLORIDE
     Indication: CANCER PAIN
  5. LOXOPROFEN SODIUM [Concomitant]
     Active Substance: LOXOPROFEN SODIUM
     Indication: APPENDIX CANCER
     Dosage: 180 MG, DAILY
     Route: 048
     Dates: start: 20180811, end: 20180917

REACTIONS (2)
  - Nausea [Recovered/Resolved]
  - Delirium [Recovered/Resolved]

NARRATIVE: CASE EVENT DATE: 20180912
